FAERS Safety Report 7595520-5 (Version None)
Quarter: 2011Q3

REPORT INFORMATION
  Report Type: 
  Country: None (occurrence: None)
  Receive Date: 20110707
  Receipt Date: 20110614
  Transmission Date: 20111222
  Serious: Yes (Hospitalization)
  Sender: FDA-Public Use
  Company Number: US-GLAXOSMITHKLINE-A0801982A

PATIENT
  Sex: Female
  Weight: 54.5 kg

DRUGS (2)
  1. AVANDAMET [Suspect]
     Indication: DIABETES MELLITUS
     Route: 065
  2. AVANDIA [Suspect]
     Indication: TYPE 2 DIABETES MELLITUS
     Dosage: 4MG TWICE PER DAY
     Route: 048
     Dates: end: 20070101

REACTIONS (8)
  - VIITH NERVE PARALYSIS [None]
  - ANGINA UNSTABLE [None]
  - MUSCULAR WEAKNESS [None]
  - VISUAL IMPAIRMENT [None]
  - CONDITION AGGRAVATED [None]
  - CEREBROVASCULAR ACCIDENT [None]
  - CATARACT [None]
  - PAIN [None]
